FAERS Safety Report 4581815-6 (Version None)
Quarter: 2005Q1

REPORT INFORMATION
  Report Type: 
  Country: None (occurrence: None)
  Receive Date: 20050214
  Receipt Date: 20040310
  Transmission Date: 20050727
  Serious: Yes (Other)
  Sender: FDA-Public Use
  Company Number: US-GLAXOSMITHKLINE-A0502166A

PATIENT
  Age: 18 Year
  Sex: Female
  Weight: 50 kg

DRUGS (4)
  1. LAMICTAL [Suspect]
     Indication: BIPOLAR DISORDER
     Dosage: 25MG TWICE PER DAY
     Route: 048
     Dates: start: 20040203, end: 20040227
  2. PAXIL CR [Suspect]
     Indication: ILL-DEFINED DISORDER
     Route: 048
  3. REMERON [Concomitant]
  4. XANAX [Concomitant]

REACTIONS (1)
  - RASH [None]
